FAERS Safety Report 15555821 (Version 1)
Quarter: 2018Q4

REPORT INFORMATION
  Report Type: Spontaneous
  Country: US (occurrence: US)
  Receive Date: 20181026
  Receipt Date: 20181026
  Transmission Date: 20190205
  Serious: Yes (Other)
  Sender: FDA-Public Use
  Company Number: US-SA-2018SA293680

PATIENT
  Age: 53 Year
  Sex: Female

DRUGS (1)
  1. PRALUENT [Suspect]
     Active Substance: ALIROCUMAB
     Indication: HYPERLIPIDAEMIA
     Dosage: 150 MG, QOW
     Route: 058

REACTIONS (10)
  - Headache [Unknown]
  - Nausea [Unknown]
  - Pyrexia [Unknown]
  - Lacrimation increased [Unknown]
  - Hypersensitivity [Unknown]
  - Oropharyngeal pain [Unknown]
  - Cerebrovascular accident [Unknown]
  - Weight decreased [Unknown]
  - Nasopharyngitis [Unknown]
  - Cough [Unknown]

NARRATIVE: CASE EVENT DATE: 2014
